FAERS Safety Report 24679598 (Version 2)
Quarter: 2025Q3

REPORT INFORMATION
  Report Type: Report from Study
  Country: US (occurrence: US)
  Receive Date: 20241129
  Receipt Date: 20250803
  Transmission Date: 20251021
  Serious: Yes (Hospitalization)
  Sender: ALEXION PHARMACEUTICALS
  Company Number: US-AstraZeneca-CH-00752458A

PATIENT
  Sex: Female
  Weight: 55.38 kg

DRUGS (1)
  1. OSIMERTINIB [Suspect]
     Active Substance: OSIMERTINIB
     Indication: Neoplasm malignant
     Dosage: 40 MILLIGRAM, QD
     Dates: start: 20241025

REACTIONS (2)
  - Blood glucose increased [Unknown]
  - Influenza [Unknown]
